FAERS Safety Report 6296362-3 (Version None)
Quarter: 2009Q3

REPORT INFORMATION
  Report Type: 
  Country: None (occurrence: None)
  Receive Date: 20090804
  Receipt Date: 20090731
  Transmission Date: 20100115
  Serious: Yes (Life-Threatening, Other)
  Sender: FDA-Public Use
  Company Number: PHEH2009US07344

PATIENT
  Age: 72 Year
  Sex: Female

DRUGS (5)
  1. LESCOL XL [Suspect]
     Indication: HYPERLIPIDAEMIA
     Dosage: 80 MG, QD
     Route: 048
     Dates: start: 20090401, end: 20090701
  2. FOSAMAX [Concomitant]
  3. LEVOTHROID [Concomitant]
  4. VITAMINS [Concomitant]
  5. ASPIRIN [Concomitant]

REACTIONS (6)
  - ASTHENIA [None]
  - DEPRESSION [None]
  - DIZZINESS [None]
  - FATIGUE [None]
  - FEELING ABNORMAL [None]
  - MANIA [None]
